FAERS Safety Report 10089001 (Version 2)
Quarter: 2014Q2

REPORT INFORMATION
  Report Type: Report from Study
  Country: IN (occurrence: IN)
  Receive Date: 20140421
  Receipt Date: 20140421
  Transmission Date: 20141212
  Serious: Yes (Death, Other)
  Sender: FDA-Public Use
  Company Number: PHHY2012IN054632

PATIENT
  Age: 37 Year
  Sex: Male

DRUGS (2)
  1. GLIVEC [Suspect]
     Indication: CHRONIC MYELOID LEUKAEMIA
     Dosage: UNK UKN, UNK
  2. GLIVEC [Suspect]
     Dosage: 800 MG, UNK

REACTIONS (5)
  - Death [Fatal]
  - Infection [Unknown]
  - Fistula [Unknown]
  - Pancytopenia [Unknown]
  - Therapeutic response decreased [Unknown]
